FAERS Safety Report 11388422 (Version 1)
Quarter: 2015Q3

REPORT INFORMATION
  Report Type: Spontaneous
  Country: GB (occurrence: GB)
  Receive Date: 20150817
  Receipt Date: 20150817
  Transmission Date: 20151125
  Serious: Yes (Disabling, Other)
  Sender: FDA-Public Use
  Company Number: GB-BAXALTA-2014BAX060872

PATIENT

DRUGS (1)
  1. PREFLUCEL [Suspect]
     Active Substance: INFLUENZA VIRUS VACCINE
     Indication: INFLUENZA IMMUNISATION
     Dosage: 1 DOSAGE FORMS
     Route: 051

REACTIONS (1)
  - Arthritis [Not Recovered/Not Resolved]
